FAERS Safety Report 25534955 (Version 1)
Quarter: 2025Q3

REPORT INFORMATION
  Report Type: Spontaneous
  Country: US (occurrence: None)
  Receive Date: 20250709
  Receipt Date: 20250709
  Transmission Date: 20251020
  Serious: Yes (Hospitalization)
  Sender: FDA-CTU
  Company Number: None

PATIENT
  Age: 58 Year
  Sex: Male
  Weight: 101.3 kg

DRUGS (1)
  1. ENFORTUMAB VEDOTIN [Suspect]
     Active Substance: ENFORTUMAB VEDOTIN
     Indication: Colorectal adenoma
     Route: 042
     Dates: start: 20250529

REACTIONS (7)
  - Fatigue [None]
  - Decreased appetite [None]
  - Jaundice [None]
  - Liver function test increased [None]
  - Lymphadenopathy [None]
  - Dilatation intrahepatic duct acquired [None]
  - Biliary obstruction [None]

NARRATIVE: CASE EVENT DATE: 20250708
